FAERS Safety Report 13939501 (Version 5)
Quarter: 2019Q4

REPORT INFORMATION
  Report Type: Spontaneous
  Country: US (occurrence: US)
  Receive Date: 20170906
  Receipt Date: 20191226
  Transmission Date: 20200122
  Serious: No
  Sender: FDA-Public Use
  Company Number: US-PFIZER INC-2017380661

PATIENT
  Age: 26 Month
  Sex: Male
  Weight: 13.15 kg

DRUGS (5)
  1. RAPAMUNE [Suspect]
     Active Substance: SIROLIMUS
     Indication: ANGIOSARCOMA
     Dosage: 1MG/1ML 0.45MG ORAL SOLUTION BY MOUTH TWO TIMES A DAY
     Route: 048
     Dates: start: 20170805, end: 20170810
  2. BACTRIM [Concomitant]
     Active Substance: SULFAMETHOXAZOLE\TRIMETHOPRIM
     Indication: PROPHYLAXIS
     Dosage: 6.8MG ORAL SOLUTION BY MOUTH ONCE A DAY
     Route: 048
     Dates: start: 201509
  3. AZITHROMYCIN ANHYDROUS. [Concomitant]
     Active Substance: AZITHROMYCIN ANHYDROUS
     Indication: PROPHYLAXIS
     Dosage: 200MG/5ML 6.3ML ORAL SOLUTION BY MOUTH ONCE A WEEK
     Route: 048
     Dates: start: 201509
  4. RAPAMUNE [Suspect]
     Active Substance: SIROLIMUS
     Indication: HAEMANGIOMA-THROMBOCYTOPENIA SYNDROME
     Dosage: 0.3 ML, 2X/DAY (0.3MG, 2 TIMES A DAY)
     Route: 048
  5. VALCYTE [Concomitant]
     Active Substance: VALGANCICLOVIR HYDROCHLORIDE
     Indication: PROPHYLAXIS
     Dosage: 50MG/1ML 3.8ML ORAL SOLUTION BY MOUTH ONCE A DAY
     Route: 048
     Dates: start: 201509

REACTIONS (4)
  - Product use in unapproved indication [Unknown]
  - Product use issue [Unknown]
  - Immunosuppressant drug level increased [Recovered/Resolved]
  - Off label use [Unknown]

NARRATIVE: CASE EVENT DATE: 20170810
